FAERS Safety Report 6106971-X (Version None)
Quarter: 2009Q1

REPORT INFORMATION
  Report Type: 
  Country: None (occurrence: None)
  Receive Date: 20090309
  Receipt Date: 20090226
  Transmission Date: 20090719
  Serious: Yes (Hospitalization, Other)
  Sender: FDA-Public Use
  Company Number: ES-JNJFOC-20090300729

PATIENT
  Age: 21 Year
  Sex: Male

DRUGS (1)
  1. RISPERDAL [Suspect]
     Indication: PSYCHOTIC DISORDER
     Dosage: 1 TABLET OF 3 MG IN THE MORNING AND 2 TABLETS OF 3MG IN THE EVENING
     Route: 048

REACTIONS (5)
  - HALLUCINATION, AUDITORY [None]
  - HYPERAESTHESIA [None]
  - HYPOCHONDRIASIS [None]
  - MUSCULOSKELETAL STIFFNESS [None]
  - TREATMENT NONCOMPLIANCE [None]
